FAERS Safety Report 7114213-1 (Version None)
Quarter: 2010Q4

REPORT INFORMATION
  Report Type: 
  Country: None (occurrence: None)
  Receive Date: 20101119
  Receipt Date: 20101108
  Transmission Date: 20110411
  Serious: Yes (Life-Threatening, Hospitalization, Other)
  Sender: FDA-Public Use
  Company Number: DE-ACTELION-A-US2010-40221

PATIENT

DRUGS (1)
  1. ILOPROST INHALATION ROW [Suspect]
     Indication: PULMONARY ARTERIAL HYPERTENSION
     Dosage: UNK UG, 6 X DAY
     Route: 055

REACTIONS (4)
  - DYSPNOEA [None]
  - LEUKOPENIA [None]
  - PYREXIA [None]
  - STENOTROPHOMONAS SEPSIS [None]
